FAERS Safety Report 4613617-6 (Version None)
Quarter: 2005Q1

REPORT INFORMATION
  Report Type: 
  Country: None (occurrence: None)
  Receive Date: 20050318
  Receipt Date: 20050318
  Transmission Date: 20050727
  Serious: Yes (Hospitalization)
  Sender: FDA-Public Use
  Company Number: None

PATIENT
  Weight: 65.5 kg

DRUGS (1)
  1. SIMVASTATIN [Suspect]
     Indication: HYPERLIPIDAEMIA
     Dosage: 40-80MG QD
     Dates: start: 20040201, end: 20041201

REACTIONS (2)
  - HEPATIC ENZYME INCREASED [None]
  - MUSCULAR WEAKNESS [None]
